FAERS Safety Report 10180702 (Version 2)
Quarter: 2014Q2

REPORT INFORMATION
  Report Type: Spontaneous
  Country: US (occurrence: US)
  Receive Date: 20140519
  Receipt Date: 20140519
  Transmission Date: 20141212
  Serious: No
  Sender: FDA-Public Use
  Company Number: US-AMGEN INC.-USASP2014011138

PATIENT
  Age: 70 Year
  Sex: Male

DRUGS (4)
  1. PROLIA [Suspect]
     Indication: PRODUCT USED FOR UNKNOWN INDICATION
     Dosage: UNK
     Route: 065
     Dates: start: 201401
  2. CITRACAL                           /01606701/ [Concomitant]
     Dosage: 4 TABLET DAILY.
  3. CITRACAL                           /01606701/ [Concomitant]
     Dosage: 1 TABLET DAILY.
  4. CALCIUM [Concomitant]

REACTIONS (2)
  - Eructation [Recovered/Resolved]
  - Discomfort [Recovered/Resolved]
